FAERS Safety Report 5511292-X (Version None)
Quarter: 2007Q4

REPORT INFORMATION
  Report Type: 
  Country: None (occurrence: None)
  Receive Date: 20071109
  Receipt Date: 20070814
  Transmission Date: 20080405
  Serious: Yes (Other)
  Sender: FDA-Public Use
  Company Number: A0666905A

PATIENT
  Age: 62 Year
  Sex: Female

DRUGS (2)
  1. ALTABAX [Suspect]
     Indication: DRUG USE FOR UNKNOWN INDICATION
     Route: 061
     Dates: start: 20070723, end: 20070729
  2. IBUPROFEN [Concomitant]

REACTIONS (5)
  - DERMATITIS CONTACT [None]
  - ERYTHEMA [None]
  - LOCAL SWELLING [None]
  - PRURITUS [None]
  - RASH VESICULAR [None]
